FAERS Safety Report 13541357 (Version 1)
Quarter: 2017Q2

REPORT INFORMATION
  Report Type: Spontaneous
  Country: US (occurrence: US)
  Receive Date: 20170512
  Receipt Date: 20170512
  Transmission Date: 20170830
  Serious: No
  Sender: FDA-Public Use
  Company Number: US-SA-2016SA129736

PATIENT
  Age: 80 Year
  Sex: Female

DRUGS (2)
  1. APIDRA SOLOSTAR [Suspect]
     Active Substance: INSULIN GLULISINE
     Indication: TYPE 2 DIABETES MELLITUS
     Dosage: 40 UNITS OF APRIDRA IN THE MORNING, 40 UNITS AT BED TIME, AND 40 UNITS AT MEALTIMES DOSE:40 UNIT(S)
     Route: 065
     Dates: start: 2006
  2. SOLOSTAR [Concomitant]
     Active Substance: DEVICE
     Dates: start: 2006

REACTIONS (1)
  - Skin mass [Unknown]
